FAERS Safety Report 5440747-1 (Version None)
Quarter: 2007Q3

REPORT INFORMATION
  Report Type: 
  Country: None (occurrence: None)
  Receive Date: 20070831
  Receipt Date: 20070822
  Transmission Date: 20080115
  Serious: Yes (Other)
  Sender: FDA-Public Use
  Company Number: PHEH2007US06889

PATIENT
  Age: 62 Year
  Sex: Female
  Weight: 75.736 kg

DRUGS (1)
  1. ZELNORM [Suspect]
     Indication: CONSTIPATION
     Dosage: 6 UNK, BID
     Route: 048
     Dates: start: 20050101, end: 20070401

REACTIONS (1)
  - CEREBROVASCULAR ACCIDENT [None]
